FAERS Safety Report 9696051 (Version 1)
Quarter: 2013Q4

REPORT INFORMATION
  Report Type: Spontaneous
  Country: US (occurrence: US)
  Receive Date: 20131119
  Receipt Date: 20131119
  Transmission Date: 20140711
  Serious: Yes (Hospitalization)
  Sender: FDA-Public Use
  Company Number: US-BAYER-2013-140572

PATIENT
  Age: 15 Year
  Sex: Female

DRUGS (1)
  1. MIDOL MENSTRUAL COMPLETE FORMULA [Suspect]
     Dosage: 20 DF, QD
     Route: 048
     Dates: start: 20131114

REACTIONS (3)
  - Extra dose administered [None]
  - Drug ineffective [None]
  - Abdominal pain [Not Recovered/Not Resolved]
